FAERS Safety Report 5718702-3 (Version None)
Quarter: 2008Q2

REPORT INFORMATION
  Report Type: 
  Country: None (occurrence: None)
  Receive Date: 20080425
  Receipt Date: 20080414
  Transmission Date: 20081010
  Serious: Yes (Other)
  Sender: FDA-Public Use
  Company Number: CA-PFIZER INC-2008033583

PATIENT
  Age: 43 Year
  Sex: Male

DRUGS (5)
  1. LYRICA [Suspect]
     Indication: PAIN
     Route: 048
  2. HYDROMORPHONE HCL [Concomitant]
  3. TOPAMAX [Concomitant]
  4. LOSEC I.V. [Concomitant]
  5. RIVOTRIL [Concomitant]

REACTIONS (3)
  - PAIN [None]
  - RASH [None]
  - SURGERY [None]
